FAERS Safety Report 7545325-6 (Version None)
Quarter: 2011Q2

REPORT INFORMATION
  Report Type: 
  Country: None (occurrence: None)
  Receive Date: 20110614
  Receipt Date: 20110602
  Transmission Date: 20111010
  Serious: Yes (Other)
  Sender: FDA-Public Use
  Company Number: US-ELI_LILLY_AND_COMPANY-US201106001232

PATIENT
  Sex: Female

DRUGS (1)
  1. ZYPREXA [Suspect]
     Dosage: 10 MG, QD
     Dates: start: 20100714

REACTIONS (4)
  - PULMONARY MASS [None]
  - URINARY TRACT OBSTRUCTION [None]
  - PULMONARY OEDEMA [None]
  - URINARY TRACT INFECTION [None]
